FAERS Safety Report 7816595-1 (Version None)
Quarter: 2011Q4

REPORT INFORMATION
  Report Type: 
  Country: None (occurrence: None)
  Receive Date: 20111017
  Receipt Date: 20111007
  Transmission Date: 20120403
  Serious: Yes (Hospitalization, Other)
  Sender: FDA-Public Use
  Company Number: SI-JNJFOC-20111003624

PATIENT
  Sex: Male

DRUGS (3)
  1. MODITEN-DEPO [Concomitant]
     Indication: SCHIZOPHRENIA
     Route: 065
  2. ZYPREXA [Suspect]
     Indication: SCHIZOPHRENIA
     Route: 065
  3. INVEGA [Suspect]
     Indication: SCHIZOPHRENIA
     Route: 048
     Dates: start: 20110901, end: 20111001

REACTIONS (1)
  - THROMBOCYTOPENIA [None]
